FAERS Safety Report 8485591-6 (Version None)
Quarter: 2012Q3

REPORT INFORMATION
  Report Type: 
  Country: None (occurrence: None)
  Receive Date: 20120703
  Receipt Date: 20120629
  Transmission Date: 20120928
  Serious: Yes (Hospitalization)
  Sender: FDA-Public Use
  Company Number: US-GILEAD-2012-0057353

PATIENT
  Sex: Female

DRUGS (1)
  1. LETAIRIS [Suspect]
     Indication: PULMONARY HYPERTENSION
     Dosage: 10 MG, UNK
     Route: 048
     Dates: start: 20080610

REACTIONS (5)
  - SYSTEMIC LUPUS ERYTHEMATOSUS [None]
  - PULMONARY ARTERIAL HYPERTENSION [None]
  - UNEVALUABLE EVENT [None]
  - SCLERODERMA [None]
  - HYPOTENSION [None]
